FAERS Safety Report 5473228-X (Version None)
Quarter: 2007Q4

REPORT INFORMATION
  Report Type: 
  Country: None (occurrence: None)
  Receive Date: 20071001
  Receipt Date: 20070919
  Transmission Date: 20080405
  Serious: Yes (Death, Hospitalization)
  Sender: FDA-Public Use
  Company Number: GB-ROCHE-503525

PATIENT
  Age: 72 Year
  Sex: Male

DRUGS (7)
  1. CAPECITABINE [Suspect]
     Dosage: DIVIDED INTO TWO DAILY DOSES, GIVEN FROM DAYS ONE TO FOURTEEN OF EACH THREE-WEEK-CYCLE.
     Route: 048
     Dates: start: 20070315
  2. CAPECITABINE [Suspect]
     Route: 048
     Dates: start: 20070524, end: 20070606
  3. CAPECITABINE [Suspect]
     Route: 048
     Dates: start: 20070614, end: 20070619
  4. BEVACIZUMAB [Suspect]
     Route: 042
     Dates: start: 20070315
  5. BEVACIZUMAB [Suspect]
     Route: 042
     Dates: start: 20070524
  6. BEVACIZUMAB [Suspect]
     Route: 042
     Dates: start: 20070614
  7. ENOXAPARIN SODIUM [Concomitant]
     Route: 048
     Dates: start: 20070508, end: 20070716

REACTIONS (1)
  - INTESTINAL PERFORATION [None]
